FAERS Safety Report 7626954-8 (Version None)
Quarter: 2011Q3

REPORT INFORMATION
  Report Type: 
  Country: None (occurrence: None)
  Receive Date: 20110721
  Receipt Date: 20110714
  Transmission Date: 20111222
  Serious: Yes (Disabling, Other)
  Sender: FDA-Public Use
  Company Number: US-PFIZER INC-2011160092

PATIENT
  Sex: Male
  Weight: 77.1 kg

DRUGS (11)
  1. TYLENOL-500 [Concomitant]
     Indication: SLEEP DISORDER
     Dosage: 1000 MG DAILY AT NIGHT
     Route: 048
  2. SINEMET [Concomitant]
     Indication: PARKINSON'S DISEASE
     Dosage: (CARBIDOPA, 25 MG)/( LEVODOPA,100 MG), SIX TIMES DAILY
     Route: 048
  3. PRAVASTATIN [Concomitant]
     Dosage: 40 MG DAILY AT NIGHT
     Route: 048
  4. AMBIEN [Suspect]
     Indication: SLEEP DISORDER
     Dosage: 10 MG DAILY AT NIGHT
     Route: 048
  5. TERAZOSIN [Concomitant]
     Dosage: UNK
  6. XANAX [Suspect]
     Indication: ANXIETY
     Dosage: 1 MG, UNK
     Route: 048
  7. LYRICA [Suspect]
     Indication: PARKINSON'S DISEASE
     Dosage: 75 MG, 2X/DAY
     Route: 048
     Dates: start: 20110518
  8. ACETYLSALICYLIC ACID [Concomitant]
     Dosage: 81 MG DAILY IN MORNING
     Route: 048
  9. PRILOSEC [Concomitant]
     Dosage: UNK
     Route: 048
  10. PRAMIPEXOLE [Concomitant]
     Dosage: UNK
  11. LYRICA [Suspect]
     Indication: PAIN

REACTIONS (6)
  - BURNING SENSATION [None]
  - PAIN [None]
  - OEDEMA PERIPHERAL [None]
  - DRUG INEFFECTIVE [None]
  - GAIT DISTURBANCE [None]
  - HYPOAESTHESIA [None]
